FAERS Safety Report 8234218-7 (Version None)
Quarter: 2012Q1

REPORT INFORMATION
  Report Type: 
  Country: None (occurrence: None)
  Receive Date: 20120326
  Receipt Date: 20120314
  Transmission Date: 20120608
  Serious: Yes (Other)
  Sender: FDA-Public Use
  Company Number: US-SANOFI-AVENTIS-2012SA017684

PATIENT
  Age: 53 Year
  Sex: Female

DRUGS (2)
  1. ALLEGRA [Suspect]
     Route: 048
     Dates: start: 20120308, end: 20120309
  2. ALLEGRA [Suspect]
     Route: 048
     Dates: start: 20120308, end: 20120309

REACTIONS (5)
  - BRONCHITIS [None]
  - MALAISE [None]
  - DEHYDRATION [None]
  - LOSS OF CONSCIOUSNESS [None]
  - THERAPEUTIC PRODUCT INEFFECTIVE FOR UNAPPROVED INDICATION [None]
